FAERS Safety Report 17143977 (Version 3)
Quarter: 2020Q4

REPORT INFORMATION
  Report Type: Report from Study
  Country: CO (occurrence: CO)
  Receive Date: 20191212
  Receipt Date: 20201023
  Transmission Date: 20210113
  Serious: Yes (Hospitalization, Other)
  Sender: FDA-Public Use
  Company Number: CO-ASTELLAS-2019US028922

PATIENT
  Age: 48 Year
  Sex: Female
  Weight: 110 kg

DRUGS (15)
  1. MYCOPHENOLATE [Concomitant]
     Active Substance: MYCOPHENOLIC ACID
     Route: 048
  2. PREDNISOLONE. [Concomitant]
     Active Substance: PREDNISOLONE
     Indication: RENAL TRANSPLANT
     Route: 048
     Dates: start: 20140214
  3. CALCITRIOL. [Concomitant]
     Active Substance: CALCITRIOL
     Indication: MINERAL SUPPLEMENTATION
     Dosage: 0.25 G, EVERY 8 HOURS
     Route: 048
     Dates: start: 20140214, end: 20190610
  4. PREDNISOLONE. [Concomitant]
     Active Substance: PREDNISOLONE
     Indication: IMMUNOSUPPRESSANT DRUG THERAPY
     Route: 048
     Dates: end: 201908
  5. METOPROLOL. [Concomitant]
     Active Substance: METOPROLOL
     Indication: BLOOD PRESSURE INCREASED
     Route: 048
  6. MYCOPHENOLATE [Concomitant]
     Active Substance: MYCOPHENOLIC ACID
     Indication: RENAL TRANSPLANT
     Dosage: 3 DF (2 TABLETS IN MORNING AND 1 TABLET IN THE NIGHT)
     Route: 048
     Dates: start: 20140214
  7. PREDNISOLONE. [Concomitant]
     Active Substance: PREDNISOLONE
     Route: 048
  8. CALCITRIOL. [Concomitant]
     Active Substance: CALCITRIOL
     Dosage: 0.25G, ONCE DAILY
     Route: 048
     Dates: start: 201907
  9. CALCIUM [Concomitant]
     Active Substance: CALCIUM
     Indication: PRODUCT USED FOR UNKNOWN INDICATION
     Dosage: UNK UNK, UNKNOWN FREQ.
     Route: 065
  10. METOPROLOL. [Concomitant]
     Active Substance: METOPROLOL
     Route: 048
  11. TACROLIMUS. [Suspect]
     Active Substance: TACROLIMUS
     Indication: RENAL TRANSPLANT
     Dosage: 7 MG (1 CAPSULE OF 5MG AND 2 CAPSULES OF 1MG) ONCE DAILY
     Route: 048
     Dates: start: 20140214
  12. TACROLIMUS. [Suspect]
     Active Substance: TACROLIMUS
     Dosage: 8 MG, ONCE DAILY (1 CAPSULE OF 5MG AND 3 CAPSULES OF 1MG )
     Route: 048
     Dates: start: 20190711
  13. ATORVASTATIN [Concomitant]
     Active Substance: ATORVASTATIN
     Indication: BLOOD CHOLESTEROL
     Route: 048
     Dates: end: 20190609
  14. ATORVASTATIN [Concomitant]
     Active Substance: ATORVASTATIN
     Route: 048
     Dates: start: 20190711
  15. CALCITRIOL. [Concomitant]
     Active Substance: CALCITRIOL
     Dosage: 0.5 MG, ONCE DAILY
     Route: 048

REACTIONS (8)
  - Oedema peripheral [Recovered/Resolved]
  - Immunosuppressant drug level decreased [Not Recovered/Not Resolved]
  - Weight increased [Not Recovered/Not Resolved]
  - Pain in extremity [Recovered/Resolved]
  - Blood creatinine increased [Recovered/Resolved]
  - Blood cholesterol increased [Recovering/Resolving]
  - Immunosuppressant drug level decreased [Not Recovered/Not Resolved]
  - Malaise [Recovered/Resolved]

NARRATIVE: CASE EVENT DATE: 20190525
